FAERS Safety Report 10356712 (Version 2)
Quarter: 2014Q3

REPORT INFORMATION
  Report Type: Report from Study
  Country: AT (occurrence: AT)
  Receive Date: 20140801
  Receipt Date: 20140818
  Transmission Date: 20150326
  Serious: Yes (Death, Hospitalization)
  Sender: FDA-Public Use
  Company Number: AT-INCYTE CORPORATION-2014IN002095

PATIENT
  Age: 68 Year
  Sex: Female
  Weight: 80 kg

DRUGS (2)
  1. JAKAFI [Suspect]
     Active Substance: RUXOLITINIB
     Dosage: 30 MG, UNK
     Route: 048
     Dates: start: 20130919, end: 20131014
  2. JAKAFI [Suspect]
     Active Substance: RUXOLITINIB
     Dosage: 10 MG, UNK
     Route: 048
     Dates: start: 20140107, end: 20140110

REACTIONS (6)
  - Sepsis [Recovering/Resolving]
  - Multi-organ failure [Fatal]
  - Disease progression [Fatal]
  - Leukaemia [Fatal]
  - Haematoma infection [Fatal]
  - Infection [Fatal]

NARRATIVE: CASE EVENT DATE: 20131014
